FAERS Safety Report 19067986 (Version 1)
Quarter: 2021Q1

REPORT INFORMATION
  Report Type: Spontaneous
  Country: US (occurrence: US)
  Receive Date: 20210327
  Receipt Date: 20210327
  Transmission Date: 20210420
  Serious: No
  Sender: FDA-Public Use
  Company Number: None

PATIENT
  Age: 40 Year
  Sex: Female
  Weight: 89.4 kg

DRUGS (2)
  1. REGENERON [Concomitant]
     Active Substance: UNSPECIFIED INGREDIENT
     Dates: start: 20210327, end: 20210327
  2. CASIRIVIMAB AND IMDEVIMAB [Suspect]
     Active Substance: CASIRIVIMAB\IMDEVIMAB
     Indication: COVID-19
     Route: 041
     Dates: start: 20210327, end: 20210327

REACTIONS (9)
  - Chest discomfort [None]
  - Cough [None]
  - General physical health deterioration [None]
  - Agitation [None]
  - Dyspnoea [None]
  - Irritability [None]
  - Infusion related reaction [None]
  - Wheezing [None]
  - Blood pressure abnormal [None]

NARRATIVE: CASE EVENT DATE: 20210327
